FAERS Safety Report 5930675-7 (Version None)
Quarter: 2008Q4

REPORT INFORMATION
  Report Type: 
  Country: None (occurrence: None)
  Receive Date: 20081007
  Receipt Date: 20050228
  Transmission Date: 20090506
  Serious: Yes (Hospitalization)
  Sender: FDA-Public Use
  Company Number: 20050011USST

PATIENT
  Age: 36 Year
  Sex: Male

DRUGS (5)
  1. CARNITOR [Suspect]
     Dosage: 1.5 GM THREE TIMES A WEEK
     Dates: start: 20031117, end: 20050228
  2. NORVASC [Concomitant]
  3. AMBIEN [Concomitant]
  4. DILANTIN [Concomitant]
  5. RENAGEL [Concomitant]

REACTIONS (1)
  - GRAND MAL CONVULSION [None]
